FAERS Safety Report 4941524-8 (Version None)
Quarter: 2006Q1

REPORT INFORMATION
  Report Type: 
  Country: None (occurrence: None)
  Receive Date: 20060308
  Receipt Date: 20060223
  Transmission Date: 20060701
  Serious: Yes (Hospitalization)
  Sender: FDA-Public Use
  Company Number: 2006027254

PATIENT
  Age: 66 Year
  Sex: Male

DRUGS (3)
  1. SILDENAFIL CITRATE [Suspect]
     Indication: ERECTILE DYSFUNCTION
     Dosage: 50 MG (50 MG,), ORAL
     Route: 048
  2. ACEBUTOLOL [Concomitant]
  3. ANALGESICS (ANALGESICS) [Concomitant]

REACTIONS (1)
  - ENDOCARDITIS [None]
